FAERS Safety Report 7513112-0 (Version None)
Quarter: 2011Q2

REPORT INFORMATION
  Report Type: 
  Country: None (occurrence: None)
  Receive Date: 20110531
  Receipt Date: 20110526
  Transmission Date: 20111010
  Serious: Yes (Other)
  Sender: FDA-Public Use
  Company Number: US-PFIZER INC-2009279979

PATIENT
  Sex: Female
  Weight: 66 kg

DRUGS (11)
  1. TOPAMAX [Concomitant]
     Indication: SLEEP DISORDER
     Dosage: UNK
     Dates: start: 20000101
  2. LIDODERM [Concomitant]
     Indication: PAIN
     Dosage: UNK
     Dates: start: 20010101
  3. PREMARIN [Suspect]
     Indication: HORMONE REPLACEMENT THERAPY
     Dosage: UNK
     Dates: start: 19880101, end: 20040101
  4. PREMPRO [Suspect]
     Indication: HORMONE REPLACEMENT THERAPY
     Dosage: UNK
     Dates: start: 20010101, end: 20020101
  5. PROVERA [Suspect]
     Indication: HORMONE REPLACEMENT THERAPY
     Dosage: UNK
     Route: 048
     Dates: start: 19980101, end: 20040101
  6. ROBAXIN [Concomitant]
     Indication: MUSCLE RELAXANT THERAPY
     Dosage: UNK
     Dates: start: 19980101
  7. ACTONEL [Concomitant]
     Indication: BONE LOSS
     Dosage: UNK
     Dates: start: 20030101
  8. XANAX [Concomitant]
     Indication: DEPRESSION
     Dosage: UNK
     Dates: start: 19980101
  9. LEXAPRO [Concomitant]
     Indication: SLEEP DISORDER
     Dosage: UNK
     Dates: start: 20000101
  10. DARVOCET [Concomitant]
     Indication: PAIN
     Dosage: UNK
     Dates: start: 19980101
  11. ATENOLOL [Concomitant]
     Indication: HYPERTENSION
     Dosage: UNK
     Dates: start: 20030101

REACTIONS (1)
  - BREAST CANCER FEMALE [None]
